FAERS Safety Report 7180476-X (Version None)
Quarter: 2010Q4

REPORT INFORMATION
  Report Type: 
  Country: None (occurrence: None)
  Receive Date: 20101221
  Receipt Date: 20101220
  Transmission Date: 20110411
  Serious: Yes (Other)
  Sender: FDA-Public Use
  Company Number: CZ-PFIZER INC-2010172590

PATIENT
  Sex: Female

DRUGS (2)
  1. SERTRALINE HYDROCHLORIDE [Suspect]
     Indication: DEPRESSION
     Dosage: 100 MG, UNK
     Dates: start: 20070101
  2. SERTRALINE HYDROCHLORIDE [Suspect]
     Dosage: 200 MG, UNK

REACTIONS (1)
  - DISEASE PROGRESSION [None]
